FAERS Safety Report 6761776-1 (Version None)
Quarter: 2010Q2

REPORT INFORMATION
  Report Type: 
  Country: None (occurrence: None)
  Receive Date: 20100609
  Receipt Date: 20100507
  Transmission Date: 20101027
  Serious: Yes (Other)
  Sender: FDA-Public Use
  Company Number: US-JNJFOC-20100303861

PATIENT
  Sex: Female
  Weight: 90.72 kg

DRUGS (5)
  1. USTEKINUMAB [Suspect]
     Indication: PSORIASIS
     Route: 058
  2. USTEKINUMAB [Suspect]
     Route: 058
  3. USTEKINUMAB [Suspect]
     Route: 058
  4. ALLOPURINOL [Suspect]
     Indication: BLOOD URIC ACID INCREASED
  5. HYDROCORTISONE [Concomitant]
     Indication: JOINT INJURY

REACTIONS (2)
  - JAUNDICE [None]
  - LIVER FUNCTION TEST ABNORMAL [None]
